FAERS Safety Report 8115152-X (Version None)
Quarter: 2012Q1

REPORT INFORMATION
  Report Type: 
  Country: None (occurrence: None)
  Receive Date: 20120206
  Receipt Date: 20120201
  Transmission Date: 20120608
  Serious: Yes (Death)
  Sender: FDA-Public Use
  Company Number: US-CELGENEUS-163-21880-11110224

PATIENT
  Sex: Male

DRUGS (11)
  1. MELPHALAN HYDROCHLORIDE [Concomitant]
     Dosage: 16 MILLIGRAM
     Route: 041
     Dates: start: 20110912
  2. RANITIDINE HCL [Concomitant]
     Dosage: 150 MILLIGRAM
     Route: 048
  3. NAPROXEN [Concomitant]
     Dosage: 500 MILLIGRAM
     Route: 048
  4. DIPHENOXYLATE HCL + ATROPINE SULFATE [Concomitant]
     Dosage: 2.5-0.25MG
     Route: 048
  5. NIFEDIPINE [Concomitant]
     Dosage: 30 MILLIGRAM
     Route: 048
  6. REVLIMID [Suspect]
     Indication: MULTIPLE MYELOMA
     Dosage: 5 MILLIGRAM
     Route: 048
     Dates: start: 20110912
  7. HYDROCODONE BITARTRATE AND ACETAMINOPHEN [Concomitant]
     Indication: PAIN
     Dosage: 5-325MG
     Route: 048
  8. LOW-ASPIRIN [Concomitant]
     Dosage: 81 MILLIGRAM
     Route: 048
  9. MULTI-VITAMINS [Concomitant]
     Route: 048
  10. PREDNISONE TAB [Concomitant]
     Dosage: 100 MILLIGRAM
     Route: 041
     Dates: start: 20110912
  11. DEXAMETHASONE [Concomitant]
     Dosage: 4 MILLIGRAM
     Route: 048

REACTIONS (1)
  - MULTIPLE MYELOMA [None]
